FAERS Safety Report 15940918 (Version 2)
Quarter: 2019Q3

REPORT INFORMATION
  Report Type: Spontaneous
  Country: US (occurrence: US)
  Receive Date: 20190208
  Receipt Date: 20190819
  Transmission Date: 20191004
  Serious: No
  Sender: FDA-Public Use
  Company Number: US-MYLANLABS-2019M1005478

PATIENT
  Sex: Male

DRUGS (1)
  1. ANASTROZOLE. [Suspect]
     Active Substance: ANASTROZOLE
     Indication: BLOOD TESTOSTERONE ABNORMAL
     Dosage: 0.5 MILLIGRAM, QW

REACTIONS (1)
  - Off label use [Unknown]
